FAERS Safety Report 12898597 (Version 3)
Quarter: 2016Q4

REPORT INFORMATION
  Report Type: Report from Study
  Country: RU (occurrence: RU)
  Receive Date: 20161101
  Receipt Date: 20161205
  Transmission Date: 20170207
  Serious: Yes (Hospitalization, Other)
  Sender: FDA-Public Use
  Company Number: RU-BRISTOL-MYERS SQUIBB COMPANY-BMS-2016-082954

PATIENT
  Age: 78 Year
  Sex: Male
  Weight: 60 kg

DRUGS (6)
  1. APIXABAN [Suspect]
     Active Substance: APIXABAN
     Indication: CEREBROVASCULAR ACCIDENT PROPHYLAXIS
     Dosage: 2.5 MG, BID
     Route: 048
     Dates: start: 20160311
  2. BRITOMAR [Concomitant]
     Active Substance: TORSEMIDE
     Indication: CARDIAC FAILURE CHRONIC
     Dosage: 5 MG, UNK
     Route: 048
     Dates: start: 2015
  3. CARVEDILOLUM [Concomitant]
     Indication: CARDIAC FAILURE CHRONIC
     Dosage: 6.25 MG 2 PER DAY
     Route: 048
     Dates: start: 2015
  4. LAVOMAX                            /02468401/ [Concomitant]
     Indication: PRODUCT USED FOR UNKNOWN INDICATION
     Dosage: 1 TAB 2 PER DAY
     Route: 065
  5. NOLPAZA [Concomitant]
     Active Substance: PANTOPRAZOLE SODIUM
     Indication: PRODUCT USED FOR UNKNOWN INDICATION
     Dosage: 20 MG, QD
     Route: 065
  6. LORISTA [Concomitant]
     Active Substance: LOSARTAN POTASSIUM
     Indication: CARDIAC FAILURE CHRONIC
     Dosage: 12.5 MG, UNK
     Route: 048
     Dates: start: 2015

REACTIONS (3)
  - Gastritis erosive [Not Recovered/Not Resolved]
  - Herpes virus infection [Unknown]
  - Cardiac failure [Recovered/Resolved]

NARRATIVE: CASE EVENT DATE: 201608
